FAERS Safety Report 4595746-9 (Version None)
Quarter: 2005Q1

REPORT INFORMATION
  Report Type: 
  Country: None (occurrence: None)
  Receive Date: 20050224
  Receipt Date: 20050211
  Transmission Date: 20050727
  Serious: Yes (Other)
  Sender: FDA-Public Use
  Company Number: 20-862-05-00003

PATIENT

DRUGS (1)
  1. HECTOROL (DOXERCALCIFEROL) CAPSULES 2.5 MCG [Suspect]

REACTIONS (2)
  - HAEMODIALYSIS [None]
  - PANCREATITIS [None]
